FAERS Safety Report 18798223 (Version 1)
Quarter: 2021Q1

REPORT INFORMATION
  Report Type: Spontaneous
  Country: CA (occurrence: CA)
  Receive Date: 20210128
  Receipt Date: 20210128
  Transmission Date: 20210419
  Serious: Yes (Death)
  Sender: FDA-Public Use
  Company Number: CA-ROCHE-2758816

PATIENT
  Age: 84 Year
  Sex: Female

DRUGS (2)
  1. TNKASE [Suspect]
     Active Substance: TENECTEPLASE
     Indication: ACUTE MYOCARDIAL INFARCTION
     Route: 042
  2. ASA [Concomitant]
     Active Substance: ASPIRIN

REACTIONS (3)
  - Haematemesis [Fatal]
  - Confusional state [Fatal]
  - Haemorrhage intracranial [Fatal]
